FAERS Safety Report 5367310-5 (Version None)
Quarter: 2007Q2

REPORT INFORMATION
  Report Type: 
  Country: None (occurrence: None)
  Receive Date: 20070622
  Receipt Date: 20060518
  Transmission Date: 20071010
  Serious: No
  Sender: FDA-Public Use
  Company Number: US-ASTRAZENECA-2006UW09731

PATIENT
  Age: 71 Year
  Sex: Male
  Weight: 106.1 kg

DRUGS (11)
  1. PULMICORT RESPULES [Suspect]
     Indication: ASTHMA
     Route: 055
     Dates: start: 20060517
  2. SINGULAIR [Concomitant]
  3. THEOPHYLLINE [Concomitant]
  4. PREVACID [Concomitant]
  5. GABAPENTIN [Concomitant]
  6. POTASSIUM ACETATE [Concomitant]
  7. IRON [Concomitant]
  8. LISINOPRIL [Concomitant]
     Route: 048
  9. METFORMIN HCL [Concomitant]
  10. FUROSEMIDE [Concomitant]
  11. CLOZEPAM [Concomitant]

REACTIONS (3)
  - CHOKING SENSATION [None]
  - POOR QUALITY SLEEP [None]
  - THROAT TIGHTNESS [None]
